FAERS Safety Report 5689300-5 (Version None)
Quarter: 2008Q1

REPORT INFORMATION
  Report Type: 
  Country: None (occurrence: None)
  Receive Date: 20080328
  Receipt Date: 20080319
  Transmission Date: 20080703
  Serious: Yes (Other)
  Sender: FDA-Public Use
  Company Number: 2008006865

PATIENT
  Age: 51 Year
  Sex: Female
  Weight: 70.3075 kg

DRUGS (2)
  1. LISTERINE WHITENING QUICK DISSOLVING STRIPS (NO ACTIVE INGREDIENT) [Suspect]
     Indication: DENTAL CARE
     Dosage: ONE STRIP ONCE PER (1 IN 1 D), ORAL
     Route: 048
     Dates: start: 20080301, end: 20080314
  2. LEVOTHYROXINE SODIUM [Concomitant]

REACTIONS (1)
  - CAUSTIC INJURY [None]
